FAERS Safety Report 12462682 (Version 1)
Quarter: 2016Q2

REPORT INFORMATION
  Report Type: Spontaneous
  Country: US (occurrence: US)
  Receive Date: 20160614
  Receipt Date: 20160614
  Transmission Date: 20160815
  Serious: No
  Sender: FDA-Public Use
  Company Number: US-JNJFOC-20160422331

PATIENT
  Age: 61 Year
  Sex: Female
  Weight: 68.49 kg

DRUGS (1)
  1. INVOKANA [Suspect]
     Active Substance: CANAGLIFLOZIN
     Indication: PRODUCT USED FOR UNKNOWN INDICATION
     Route: 048
     Dates: start: 201604

REACTIONS (2)
  - Glycosuria [Unknown]
  - Urine abnormality [Unknown]

NARRATIVE: CASE EVENT DATE: 201604
